FAERS Safety Report 5980846-9 (Version None)
Quarter: 2008Q4

REPORT INFORMATION
  Report Type: 
  Country: None (occurrence: None)
  Receive Date: 20081205
  Receipt Date: 20080604
  Transmission Date: 20090506
  Serious: No
  Sender: FDA-Public Use
  Company Number: A0731066A

PATIENT
  Age: 41 Year
  Sex: Female

DRUGS (4)
  1. COMMIT [Suspect]
     Dates: end: 20080602
  2. NICODERM CQ [Suspect]
  3. NICODERM CQ [Suspect]
  4. NICODERM CQ [Suspect]

REACTIONS (23)
  - ABDOMINAL DISTENSION [None]
  - ABNORMAL DREAMS [None]
  - DIARRHOEA [None]
  - DISTURBANCE IN ATTENTION [None]
  - DRUG INEFFECTIVE [None]
  - DYSPNOEA [None]
  - FATIGUE [None]
  - FEELING ABNORMAL [None]
  - FEELING HOT [None]
  - FLATULENCE [None]
  - FLUID RETENTION [None]
  - INTENTIONAL DRUG MISUSE [None]
  - JOINT SWELLING [None]
  - NICOTINE DEPENDENCE [None]
  - NIGHTMARE [None]
  - OROPHARYNGEAL DISCOMFORT [None]
  - PAIN [None]
  - PALPITATIONS [None]
  - PANIC ATTACK [None]
  - PHARYNGEAL OEDEMA [None]
  - PSYCHOMOTOR HYPERACTIVITY [None]
  - SENSATION OF FOREIGN BODY [None]
  - WITHDRAWAL SYNDROME [None]
